FAERS Safety Report 7063701-5 (Version None)
Quarter: 2010Q4

REPORT INFORMATION
  Report Type: 
  Country: None (occurrence: None)
  Receive Date: 20101026
  Receipt Date: 20101015
  Transmission Date: 20110411
  Serious: Yes (Other)
  Sender: FDA-Public Use
  Company Number: KE-US-EMD SERONO, INC.-7020178

PATIENT
  Age: 24 Year
  Sex: Female
  Weight: 75 kg

DRUGS (6)
  1. GONAL-F [Suspect]
     Indication: AZOOSPERMIA
     Route: 065
     Dates: start: 20090319, end: 20090319
  2. GONAL-F [Suspect]
     Route: 065
     Dates: start: 20090321, end: 20090321
  3. GONAL-F [Suspect]
     Route: 065
     Dates: start: 20090323, end: 20090323
  4. GONAL-F [Suspect]
     Route: 065
     Dates: start: 20091230, end: 20091230
  5. GONAL-F [Suspect]
     Route: 065
     Dates: start: 20100102, end: 20100102
  6. GONAL-F [Suspect]
     Route: 065
     Dates: start: 20100104, end: 20100104

REACTIONS (1)
  - ABORTION SPONTANEOUS [None]
